FAERS Safety Report 13630523 (Version 1)
Quarter: 2017Q2

REPORT INFORMATION
  Report Type: Report from Study
  Country: BR (occurrence: BR)
  Receive Date: 20170608
  Receipt Date: 20170608
  Transmission Date: 20170830
  Serious: Yes (Hospitalization)
  Sender: FDA-Public Use
  Company Number: PHHY2017BR083163

PATIENT
  Sex: Male
  Weight: 68 kg

DRUGS (1)
  1. EXELON PATCH [Suspect]
     Active Substance: RIVASTIGMINE
     Indication: MEMORY IMPAIRMENT
     Dosage: 9.5 MG, QD (PATCH 10 (CM2))
     Route: 062

REACTIONS (6)
  - Lung disorder [Unknown]
  - Pneumonia [Recovering/Resolving]
  - Fatigue [Unknown]
  - Dyspnoea [Unknown]
  - Weight decreased [Unknown]
  - Influenza [Unknown]
